FAERS Safety Report 4457651-8 (Version None)
Quarter: 2004Q3

REPORT INFORMATION
  Report Type: 
  Country: None (occurrence: None)
  Receive Date: 20040922
  Receipt Date: 20040908
  Transmission Date: 20050211
  Serious: Yes (Hospitalization)
  Sender: FDA-Public Use
  Company Number: 2004-04010

PATIENT
  Age: 44 Year
  Sex: Female

DRUGS (3)
  1. CLORAZEPATEDIPOTASSIUM(WATSON LABORATORIES) (CLORAZEPATE DIPOTASSIUM) [Suspect]
     Indication: CHOREA
     Dosage: SEE IMAGE
     Route: 048
  2. HALOPERIDOL [Suspect]
     Indication: CHOREA
     Dosage: SEE IMAGE
     Route: 048
  3. TETRABENAZINE (TETRABENAZINE) [Suspect]
     Indication: CHOREA
     Dosage: SEE IMAGE
     Route: 048

REACTIONS (1)
  - HYPERTHERMIA [None]
